FAERS Safety Report 25361131 (Version 1)
Quarter: 2025Q2

REPORT INFORMATION
  Report Type: Spontaneous
  Country: US (occurrence: US)
  Receive Date: 20250527
  Receipt Date: 20250527
  Transmission Date: 20250716
  Serious: Yes (Other)
  Sender: DR REDDYS
  Company Number: US-DRL-USA-USA/2025/05/007586

PATIENT
  Age: 74 Year
  Sex: Male

DRUGS (3)
  1. FLUOROURACIL [Suspect]
     Active Substance: FLUOROURACIL
     Indication: Disseminated superficial actinic porokeratosis
  2. LOVASTATIN [Concomitant]
     Active Substance: LOVASTATIN
     Indication: Disseminated superficial actinic porokeratosis
     Route: 061
  3. CHOLESTEROL [Concomitant]
     Active Substance: CHOLESTEROL
     Indication: Disseminated superficial actinic porokeratosis

REACTIONS (1)
  - Drug ineffective for unapproved indication [Unknown]
